FAERS Safety Report 7827666-8 (Version None)
Quarter: 2011Q4

REPORT INFORMATION
  Report Type: 
  Country: None (occurrence: None)
  Receive Date: 20111020
  Receipt Date: 20111008
  Transmission Date: 20120403
  Serious: Yes (Death)
  Sender: FDA-Public Use
  Company Number: CN-PFIZER INC-2011191154

PATIENT
  Age: 47 Year
  Sex: Female
  Weight: 65.6 kg

DRUGS (1)
  1. CRIZOTINIB [Suspect]
     Indication: NON-SMALL CELL LUNG CANCER
     Dosage: 250 MG, 2X/DAY
     Route: 048
     Dates: start: 20110707, end: 20110728

REACTIONS (3)
  - DYSPNOEA [None]
  - VOMITING [None]
  - EATING DISORDER [None]
